FAERS Safety Report 17535215 (Version 1)
Quarter: 2020Q1

REPORT INFORMATION
  Report Type: Other
  Country: GB (occurrence: GB)
  Receive Date: 20200313
  Receipt Date: 20200313
  Transmission Date: 20200409
  Serious: No
  Sender: FDA-Public Use
  Company Number: GB-LUPIN PHARMACEUTICALS INC.-2019-04284

PATIENT
  Age: 72 Year
  Sex: Male
  Weight: 71 kg

DRUGS (13)
  1. CYCLIZINE [Concomitant]
     Active Substance: CYCLIZINE
     Dosage: 1 DOSAGE FORM, TID (1 TABLET THREE TIMES DAILY)
     Route: 065
     Dates: start: 20190314, end: 20190408
  2. AMOXICILLIN. [Concomitant]
     Active Substance: AMOXICILLIN
     Indication: PRODUCT USED FOR UNKNOWN INDICATION
     Dosage: 2 DOSAGE FORM, BID (2 TABLETS TWICE A DAY)
     Route: 065
     Dates: start: 20190128
  3. CLARITHROMYCIN. [Concomitant]
     Active Substance: CLARITHROMYCIN
     Indication: PRODUCT USED FOR UNKNOWN INDICATION
     Dosage: 1 DOSAGE FORM, BID (1 TABLET TWICE A DAY)
     Route: 065
     Dates: start: 20190128
  4. DIAZEPAM. [Concomitant]
     Active Substance: DIAZEPAM
     Indication: PRODUCT USED FOR UNKNOWN INDICATION
     Dosage: UNK UNK, PRN (MAX ONE THREE TIMES A DAY WHEN REQUIRED FOR PANIC ATTACKS )
     Route: 065
     Dates: start: 20190327
  5. BIMATOPROST. [Concomitant]
     Active Substance: BIMATOPROST
     Indication: PRODUCT USED FOR UNKNOWN INDICATION
     Dosage: 1 DROP, QD (1 DROP INTO BOTH EYES ONCE IN THE EVENING)
     Route: 047
     Dates: start: 20190111
  6. COCODAMOL [Concomitant]
     Active Substance: ACETAMINOPHEN\CODEINE PHOSPHATE
     Indication: PRODUCT USED FOR UNKNOWN INDICATION
     Dosage: UNK ( 1-2 CAPSULES UP TO FOUR TIMES DAILY)
     Route: 065
     Dates: start: 20190220
  7. LANSOPRAZOLE. [Concomitant]
     Active Substance: LANSOPRAZOLE
     Indication: PRODUCT USED FOR UNKNOWN INDICATION
     Dosage: 1 DOSAGE FORM, QD (1 CAPSULE DAILY)
     Route: 065
     Dates: start: 20190128
  8. CYCLIZINE [Concomitant]
     Active Substance: CYCLIZINE
     Indication: PRODUCT USED FOR UNKNOWN INDICATION
     Dosage: 1 DOSAGE FORM, TID (1 TABLET THREE TIMES DAILY)
     Route: 065
     Dates: start: 20190226
  9. SERTRALINE [Suspect]
     Active Substance: SERTRALINE HYDROCHLORIDE
     Indication: PRODUCT USED FOR UNKNOWN INDICATION
     Dosage: UNK
     Route: 048
  10. LANSOPRAZOLE. [Concomitant]
     Active Substance: LANSOPRAZOLE
     Dosage: 1 DOSAGE FORM, QD (1 CAPSULE DAILY)
     Route: 065
     Dates: start: 20190204
  11. PREDNISOLONE. [Concomitant]
     Active Substance: PREDNISOLONE
     Indication: PRODUCT USED FOR UNKNOWN INDICATION
     Dosage: 6 DOSAGE FORM, QD (TAKE 6 DAILY)
     Route: 065
     Dates: start: 20190215
  12. CYCLIZINE [Concomitant]
     Active Substance: CYCLIZINE
     Dosage: 1 DOSAGE FORM, TID (1 TABLET THREE TIMES DAILY)
     Route: 065
     Dates: start: 20190314
  13. CYCLIZINE [Concomitant]
     Active Substance: CYCLIZINE
     Dosage: 1 DOSAGE FORM, TID (1 TABLET THREE TIMES DAILY)
     Route: 065
     Dates: start: 20190226, end: 20190314

REACTIONS (1)
  - Rash [Recovering/Resolving]
